FAERS Safety Report 11701585 (Version 5)
Quarter: 2018Q1

REPORT INFORMATION
  Report Type: Report from Study
  Country: JP (occurrence: JP)
  Receive Date: 20151105
  Receipt Date: 20180312
  Transmission Date: 20180508
  Serious: Yes (Other)
  Sender: FDA-Public Use
  Company Number: JP-AEGERION PHARMACEUTICAL INC.-AEGR001588

PATIENT
  Age: 14 Year
  Sex: Female

DRUGS (32)
  1. CEFZON                             /00559701/ [Concomitant]
     Indication: UPPER RESPIRATORY TRACT INFLAMMATION
     Dosage: 300 MG, QD
     Dates: start: 20131016, end: 20131019
  2. LEVOFLOXACIN HEMIHYDRATE [Concomitant]
     Active Substance: LEVOFLOXACIN
     Indication: BRONCHITIS
     Dosage: 300 MG, QD
     Dates: start: 20131024, end: 20131028
  3. TRANCOLON [Concomitant]
     Active Substance: MEPENZOLATE BROMIDE
     Indication: IRRITABLE BOWEL SYNDROME
     Dosage: 7.5 MG, QD
     Dates: start: 20131030, end: 20131120
  4. ALLEGRA [Concomitant]
     Active Substance: FEXOFENADINE HYDROCHLORIDE
     Indication: RHINITIS
     Dosage: 60 MG, QD
     Dates: start: 20140305, end: 20140505
  5. METRELEPTIN SHIONOGI [Suspect]
     Active Substance: METRELEPTIN
     Dosage: 2.7 MG, QD
     Route: 058
     Dates: start: 20130925, end: 20131203
  6. METGLUCO [Suspect]
     Active Substance: METFORMIN HYDROCHLORIDE
     Indication: LIPOATROPHY
     Dosage: 500 MG, QD
     Route: 048
     Dates: start: 20140122, end: 20140304
  7. PROMAC                             /00024401/ [Concomitant]
     Active Substance: NITROFURANTOIN
     Indication: GASTRITIS
     Dosage: 75 MG, QD
     Dates: start: 20130810, end: 20131218
  8. COCARL [Concomitant]
     Active Substance: ACETAMINOPHEN
     Indication: UPPER RESPIRATORY TRACT INFLAMMATION
     Dosage: UNK
     Dates: start: 20131007, end: 20131019
  9. ESTRANA [Concomitant]
     Active Substance: ESTRADIOL
     Indication: MENSTRUATION IRREGULAR
     Dosage: UNK
     Dates: start: 20150715
  10. METGLUCO [Suspect]
     Active Substance: METFORMIN HYDROCHLORIDE
     Dosage: 1000 MG, QD
     Route: 048
     Dates: start: 20151007, end: 20151124
  11. METGLUCO [Suspect]
     Active Substance: METFORMIN HYDROCHLORIDE
     Dosage: 1000 MG, QD
     Route: 048
     Dates: start: 20160406, end: 20170125
  12. METGLUCO [Suspect]
     Active Substance: METFORMIN HYDROCHLORIDE
     Dosage: 2250 MG, QD
     Route: 048
     Dates: start: 20170326
  13. CEFZON                             /00559701/ [Concomitant]
     Dosage: 300 MG, QD
     Dates: start: 20151215, end: 20151217
  14. CHLOPHEDRIN S                      /00560301/ [Concomitant]
     Indication: BRONCHITIS
     Dosage: 3 DOSAGE FORM/DAY
     Dates: start: 20131024, end: 20131028
  15. FLOMOX                             /01418603/ [Concomitant]
     Active Substance: CEFCAPENE PIVOXIL HYDROCHLORIDE HYDRATE
     Indication: BRONCHITIS
     Dosage: 300 MG, QD
     Dates: start: 20131030, end: 20131103
  16. REBAMIPIDE [Concomitant]
     Active Substance: REBAMIPIDE
     Indication: IRRITABLE BOWEL SYNDROME
     Dosage: UNK
     Dates: start: 20131123, end: 20131130
  17. LUTORAL [Concomitant]
     Active Substance: CHLORMADINONE ACETATE
     Indication: MENSTRUATION IRREGULAR
     Dosage: 4 MG, QD
     Route: 048
     Dates: start: 20141105, end: 20170815
  18. METRELEPTIN SHIONOGI [Suspect]
     Active Substance: METRELEPTIN
     Dosage: 3 MG, QD
     Route: 058
     Dates: start: 20131204
  19. METGLUCO [Suspect]
     Active Substance: METFORMIN HYDROCHLORIDE
     Dosage: 250 MG, QD
     Route: 048
     Dates: start: 20140305, end: 20140812
  20. METGLUCO [Suspect]
     Active Substance: METFORMIN HYDROCHLORIDE
     Dosage: 500 MG, QD
     Route: 048
     Dates: start: 20141007, end: 20150106
  21. METGLUCO [Suspect]
     Active Substance: METFORMIN HYDROCHLORIDE
     Dosage: 1250 MG, QD
     Route: 048
     Dates: start: 20160120, end: 20160405
  22. LOBU [Concomitant]
     Active Substance: LOBUCAVIR
     Indication: BRONCHITIS
     Dosage: 180 MG, QD
     Dates: start: 20131030, end: 20131103
  23. CARBOCISTEINE [Concomitant]
     Active Substance: CARBOCYSTEINE
     Indication: UPPER RESPIRATORY TRACT INFLAMMATION
     Dosage: 1000 MG, QD
     Dates: start: 20131007, end: 20131014
  24. LOXOPROFEN NA [Concomitant]
     Active Substance: LOXOPROFEN SODIUM
     Indication: BRONCHITIS
     Dosage: 180 MG, QD
     Dates: start: 20131024, end: 20131028
  25. CALONAL [Concomitant]
     Active Substance: ACETAMINOPHEN
     Indication: DYSMENORRHOEA
     Dosage: UNK
     Dates: start: 20170419, end: 20170517
  26. METRELEPTIN SHIONOGI [Suspect]
     Active Substance: METRELEPTIN
     Indication: LIPOATROPHY
     Dosage: 2.7 MG, QD
     Route: 058
     Dates: start: 20110324, end: 20130924
  27. METGLUCO [Suspect]
     Active Substance: METFORMIN HYDROCHLORIDE
     Dosage: 750 MG, QD
     Route: 048
     Dates: start: 20150107, end: 20151006
  28. METGLUCO [Suspect]
     Active Substance: METFORMIN HYDROCHLORIDE
     Dosage: 1500 MG, QD
     Route: 048
     Dates: start: 20151125, end: 20160119
  29. METGLUCO [Suspect]
     Active Substance: METFORMIN HYDROCHLORIDE
     Dosage: 1250 MG, QD
     Route: 048
     Dates: start: 20170126, end: 20170325
  30. CEREKINON [Concomitant]
     Active Substance: TRIMEBUTINE
     Indication: IRRITABLE BOWEL SYNDROME
     Dosage: 100 MG, QD
     Dates: start: 20131030, end: 20131120
  31. ALLEGRA [Concomitant]
     Active Substance: FEXOFENADINE HYDROCHLORIDE
     Dosage: 120 MG, QD
     Dates: start: 20150318, end: 20150609
  32. METGLUCO [Suspect]
     Active Substance: METFORMIN HYDROCHLORIDE
     Dosage: 375 MG, QD
     Route: 048
     Dates: start: 20140813, end: 20141006

REACTIONS (14)
  - Glucose tolerance decreased [Not Recovered/Not Resolved]
  - Dysmenorrhoea [Recovering/Resolving]
  - Constipation [Not Recovered/Not Resolved]
  - Irritable bowel syndrome [Recovered/Resolved]
  - Menstruation irregular [Not Recovered/Not Resolved]
  - Rhinitis [Recovered/Resolved]
  - Antibody test positive [Not Recovered/Not Resolved]
  - Dry eye [Not Recovered/Not Resolved]
  - Upper respiratory tract infection [Recovered/Resolved]
  - Hepatic function abnormal [Not Recovered/Not Resolved]
  - Bronchitis [Recovered/Resolved]
  - Rhinitis [Recovering/Resolving]
  - Upper respiratory tract infection [Recovered/Resolved]
  - Hepatic function abnormal [Recovering/Resolving]

NARRATIVE: CASE EVENT DATE: 20131007
